FAERS Safety Report 24257650 (Version 3)
Quarter: 2024Q4

REPORT INFORMATION
  Report Type: Spontaneous
  Country: US (occurrence: US)
  Receive Date: 20240828
  Receipt Date: 20241104
  Transmission Date: 20250115
  Serious: No
  Sender: BRISTOL-MYERS SQUIBB COMPANY
  Company Number: US-BRISTOL-MYERS SQUIBB COMPANY-2024-136178

PATIENT
  Age: 80 Year
  Sex: Female

DRUGS (2)
  1. ORENCIA [Suspect]
     Active Substance: ABATACEPT
     Indication: Rheumatoid arthritis
     Route: 058
     Dates: start: 202408
  2. ORENCIA [Suspect]
     Active Substance: ABATACEPT
     Dosage: DOSE: 125MG/ML
     Route: 058
     Dates: start: 202408

REACTIONS (9)
  - General physical health deterioration [Unknown]
  - Pain [Unknown]
  - Joint swelling [Unknown]
  - Arthralgia [Unknown]
  - Muscle tightness [Unknown]
  - Muscle spasms [Unknown]
  - Fatigue [Unknown]
  - Bronchitis [Unknown]
  - Rheumatoid arthritis [Unknown]
